FAERS Safety Report 7726899-9 (Version None)
Quarter: 2011Q3

REPORT INFORMATION
  Report Type: 
  Country: None (occurrence: None)
  Receive Date: 20110902
  Receipt Date: 20110829
  Transmission Date: 20111222
  Serious: Yes (Hospitalization)
  Sender: FDA-Public Use
  Company Number: RO-MERCK-1107USA01737

PATIENT
  Age: 22 Year
  Sex: Female

DRUGS (3)
  1. DARUNAVIR [Suspect]
     Indication: HIV INFECTION
     Route: 065
  2. ISENTRESS [Suspect]
     Indication: HIV INFECTION
     Route: 048
  3. TENOFOVIR [Concomitant]
     Indication: HIV INFECTION
     Route: 065

REACTIONS (4)
  - RASH MACULO-PAPULAR [None]
  - RASH PRURITIC [None]
  - RASH ERYTHEMATOUS [None]
  - DERMATITIS ALLERGIC [None]
